FAERS Safety Report 20971276 (Version 2)
Quarter: 2022Q3

REPORT INFORMATION
  Report Type: Spontaneous
  Country: US (occurrence: US)
  Receive Date: 20220616
  Receipt Date: 20220912
  Transmission Date: 20221027
  Serious: No
  Sender: FDA-Public Use
  Company Number: US-SA-SAC20220609000111

PATIENT
  Age: 62 Year
  Sex: Female

DRUGS (1)
  1. DUPIXENT [Suspect]
     Active Substance: DUPILUMAB
     Dosage: 300 MG, OTHER
     Route: 058
     Dates: start: 20220308, end: 20220502

REACTIONS (10)
  - Eczema [Unknown]
  - Bone pain [Unknown]
  - Oral discomfort [Unknown]
  - Pain [Unknown]
  - Lip exfoliation [Unknown]
  - Skin fissures [Unknown]
  - Skin swelling [Unknown]
  - Skin exfoliation [Unknown]
  - Erythema [Unknown]
  - Rash [Unknown]

NARRATIVE: CASE EVENT DATE: 20220502
